FAERS Safety Report 19327815 (Version 1)
Quarter: 2021Q2

REPORT INFORMATION
  Report Type: Spontaneous
  Country: CN (occurrence: CN)
  Receive Date: 20210528
  Receipt Date: 20210528
  Transmission Date: 20210717
  Serious: Yes (Hospitalization, Other)
  Sender: FDA-Public Use
  Company Number: CN-BAXTER-2021BAX012723

PATIENT
  Age: 22 Year
  Sex: Female
  Weight: 41 kg

DRUGS (16)
  1. ENDOXAN [Suspect]
     Active Substance: CYCLOPHOSPHAMIDE
     Indication: METASTASES TO LUNG
  2. 0.9% SODIUM CHLORIDE INJECTION [Suspect]
     Active Substance: SODIUM CHLORIDE
     Indication: MEDICATION DILUTION
     Dosage: ENDOXAN 0.8 G + 0.9% SODIUM CHLORIDE 100 ML
     Route: 041
     Dates: start: 20210427, end: 20210427
  3. 0.9% SODIUM CHLORIDE INJECTION [Suspect]
     Active Substance: SODIUM CHLORIDE
     Dosage: METHOTREXATE 140 MG + 0.9% SODIUM CHLORIDE INJECTION 100 ML (WITHIN 30 MINUTES, PROTECTED FROM LIGHT
     Route: 041
     Dates: start: 20210420, end: 20210420
  4. ACTINOMYCIN D [Suspect]
     Active Substance: DACTINOMYCIN
     Indication: METASTASES TO LUNG
  5. ACTINOMYCIN D [Suspect]
     Active Substance: DACTINOMYCIN
     Indication: MALIGNANT HYDATIDIFORM MOLE
     Dosage: ACTINOMYCIN D 0.5 MG + 5% GLUCOSE INJECTION 500 ML
     Route: 041
     Dates: start: 20210420, end: 20210421
  6. ETOPOSIDE. [Suspect]
     Active Substance: ETOPOSIDE
     Indication: MALIGNANT HYDATIDIFORM MOLE
     Dosage: ETOPOSIDE 0.14 G + 0.9% SODIUM CHLORIDE INJECTION 500 ML
     Route: 041
     Dates: start: 20210420, end: 20210421
  7. VINCRISTINE SULFATE. [Suspect]
     Active Substance: VINCRISTINE SULFATE
     Indication: METASTASES TO LUNG
  8. METHOTREXATE. [Suspect]
     Active Substance: METHOTREXATE
     Indication: METASTASES TO LUNG
     Dosage: METHOTREXATE 140 MG + 0.9% SODIUM CHLORIDE INJECTION 100 ML (WITHIN 30 MINUTES, PROTECTED FROM LIGHT
     Route: 041
     Dates: start: 20210420, end: 20210420
  9. VINCRISTINE SULFATE. [Suspect]
     Active Substance: VINCRISTINE SULFATE
     Indication: MALIGNANT HYDATIDIFORM MOLE
     Dosage: VINCRISTINE SULFATE 1.4 MG + 0.9% SODIUM CHLORIDE INJECTION 100 ML
     Route: 041
     Dates: start: 20210427, end: 20210427
  10. 0.9% SODIUM CHLORIDE INJECTION [Suspect]
     Active Substance: SODIUM CHLORIDE
     Dosage: ETOPOSIDE 0.14 G + 0.9% SODIUM CHLORIDE INJECTION 500 ML
     Route: 041
     Dates: start: 20210420, end: 20210421
  11. 0.9% SODIUM CHLORIDE INJECTION [Suspect]
     Active Substance: SODIUM CHLORIDE
     Dosage: METHOTREXATE 140 MG + 0.9% SODIUM CHLORIDE INJECTION 100 ML (WITHIN 30 MINUTES, PROTECTED FROM LIGHT
     Route: 041
     Dates: start: 20210420, end: 20210420
  12. ENDOXAN [Suspect]
     Active Substance: CYCLOPHOSPHAMIDE
     Indication: MALIGNANT HYDATIDIFORM MOLE
     Dosage: ENDOXAN 0.8 G + 0.9% SODIUM CHLORIDE 100 ML
     Route: 041
     Dates: start: 20210427, end: 20210427
  13. 0.9% SODIUM CHLORIDE INJECTION [Suspect]
     Active Substance: SODIUM CHLORIDE
     Dosage: VINCRISTINE SULFATE 1.4 MG + 0.9% SODIUM CHLORIDE INJECTION 100 ML
     Route: 041
     Dates: start: 20210427, end: 20210427
  14. 5% GLUCOSE  INJECTION [Suspect]
     Active Substance: DEXTROSE
     Indication: MEDICATION DILUTION
     Dosage: ACTINOMYCIN D 0.5 MG + 5% GLUCOSE INJECTION 500 ML
     Route: 041
     Dates: start: 20210420, end: 20210421
  15. METHOTREXATE. [Suspect]
     Active Substance: METHOTREXATE
     Indication: MALIGNANT HYDATIDIFORM MOLE
     Dosage: METHOTREXATE 140 MG + 0.9% SODIUM CHLORIDE INJECTION 100 ML (WITHIN 30 MINUTES, PROTECTED FROM LIGHT
     Route: 041
     Dates: start: 20210420, end: 20210420
  16. ETOPOSIDE. [Suspect]
     Active Substance: ETOPOSIDE
     Indication: METASTASES TO LUNG

REACTIONS (3)
  - Myelosuppression [Unknown]
  - Leukopenia [Recovered/Resolved]
  - Neutrophil count decreased [Recovered/Resolved]

NARRATIVE: CASE EVENT DATE: 20210505
